FAERS Safety Report 6732347-8 (Version None)
Quarter: 2010Q2

REPORT INFORMATION
  Report Type: 
  Country: None (occurrence: None)
  Receive Date: 20100519
  Receipt Date: 20100507
  Transmission Date: 20101027
  Serious: Yes (Hospitalization, Disabling)
  Sender: FDA-Public Use
  Company Number: FR-ROCHE-656442

PATIENT
  Sex: Male
  Weight: 72 kg

DRUGS (15)
  1. METHOXY POLYETHYLENE GLYCOL-EPOETIN BETA [Suspect]
     Dosage: FORM: PRE-FILLED SYRINGE.
     Route: 042
     Dates: start: 20090407
  2. METHOXY POLYETHYLENE GLYCOL-EPOETIN BETA [Suspect]
     Dosage: LAST DOSE PRIOR TO SAE ON 27 JULY 2009 WAS 75 UG. FORM:PFS
     Route: 042
     Dates: start: 20090504
  3. METHOXY POLYETHYLENE GLYCOL-EPOETIN BETA [Suspect]
     Dosage: LAST DOSE PRIOR TO SAE ON 23 SEPTEMBER 2009 WAS 50 UG. FORM:PFS
     Route: 042
     Dates: end: 20091019
  4. CORVASAL [Concomitant]
     Dates: start: 20090116
  5. IKOREL [Concomitant]
     Dates: start: 20060309
  6. KARDEGIC [Concomitant]
     Dates: start: 20020605
  7. RENAGEL [Concomitant]
     Dates: start: 20080711
  8. TAHOR [Concomitant]
     Dates: start: 20060104
  9. IXPRIM [Concomitant]
     Dates: start: 20071128
  10. SPECIAFOLDINE [Concomitant]
     Dates: start: 20071115, end: 20080928
  11. SPECIAFOLDINE [Concomitant]
     Dates: start: 20091014
  12. MOTILIUM [Concomitant]
     Dates: start: 20071128, end: 20090928
  13. MOTILIUM [Concomitant]
     Dates: start: 20091014
  14. MOPRAL [Concomitant]
     Dates: start: 20000508
  15. NULYTELY [Concomitant]
     Dates: start: 20080815

REACTIONS (4)
  - CELLULITIS [None]
  - LYMPHANGITIS [None]
  - OPTIC ISCHAEMIC NEUROPATHY [None]
  - THROMBOSIS [None]
